FAERS Safety Report 17224996 (Version 1)
Quarter: 2020Q1

REPORT INFORMATION
  Report Type: Spontaneous
  Country: US (occurrence: US)
  Receive Date: 20200101
  Receipt Date: 20200101
  Transmission Date: 20200409
  Serious: Yes (Other)
  Sender: FDA-Public Use
  Company Number: None

PATIENT
  Age: 67 Year
  Sex: Female
  Weight: 50.4 kg

DRUGS (1)
  1. PROLIA [Suspect]
     Active Substance: DENOSUMAB
     Indication: OSTEOPOROSIS
     Dosage: ?          OTHER FREQUENCY:Q6 MONTHS;?
     Route: 058
     Dates: start: 20191202, end: 20191202

REACTIONS (5)
  - Anxiety [None]
  - Aphasia [None]
  - Crying [None]
  - Migraine [None]
  - Feeling drunk [None]

NARRATIVE: CASE EVENT DATE: 20191202
